FAERS Safety Report 13472668 (Version 1)
Quarter: 2017Q2

REPORT INFORMATION
  Report Type: Spontaneous
  Country: US (occurrence: US)
  Receive Date: 20170424
  Receipt Date: 20170424
  Transmission Date: 20170830
  Serious: No
  Sender: FDA-Public Use
  Company Number: US-ELI_LILLY_AND_COMPANY-US201704006245

PATIENT
  Age: 64 Year
  Sex: Female
  Weight: 83.1 kg

DRUGS (2)
  1. CEPHALEXIN HYDROCHLORIDE [Suspect]
     Active Substance: CEPHALEXIN HYDROCHLORIDE
     Indication: PRODUCT USED FOR UNKNOWN INDICATION
     Dosage: UNK, UNKNOWN
     Route: 065
  2. PENICILLIN                         /00000901/ [Concomitant]
     Active Substance: PENICILLIN G
     Dosage: UNK, UNKNOWN
     Route: 065

REACTIONS (1)
  - Hypersensitivity [Unknown]

NARRATIVE: CASE EVENT DATE: 20161011
